FAERS Safety Report 6593037-8 (Version None)
Quarter: 2010Q1

REPORT INFORMATION
  Report Type: 
  Country: None (occurrence: None)
  Receive Date: 20100222
  Receipt Date: 20100209
  Transmission Date: 20100710
  Serious: Yes (Other)
  Sender: FDA-Public Use
  Company Number: GB-NOVOPROD-303340

PATIENT
  Sex: Male

DRUGS (2)
  1. VICTOZA [Suspect]
     Indication: TYPE 2 DIABETES MELLITUS
     Dosage: 1.2 MG, QD
     Route: 058
     Dates: start: 20091001
  2. VICTOZA [Suspect]
     Dosage: 1.2 MG, QD
     Route: 058

REACTIONS (5)
  - AREFLEXIA [None]
  - BACK PAIN [None]
  - DIABETIC AMYOTROPHY [None]
  - LOSS OF CONTROL OF LEGS [None]
  - PARAESTHESIA [None]
